FAERS Safety Report 25884485 (Version 2)
Quarter: 2025Q4

REPORT INFORMATION
  Report Type: Spontaneous
  Country: EU (occurrence: EU)
  Receive Date: 20251006
  Receipt Date: 20251008
  Transmission Date: 20260118
  Serious: Yes (Other)
  Sender: NOVARTIS
  Company Number: EU-002147023-NVSC2025DE154166

PATIENT
  Age: 41 Year
  Sex: Male

DRUGS (1)
  1. FABHALTA [Suspect]
     Active Substance: IPTACOPAN HYDROCHLORIDE
     Indication: C3 glomerulopathy
     Dosage: UNK
     Route: 065
     Dates: start: 202509

REACTIONS (3)
  - Acute kidney injury [Not Recovered/Not Resolved]
  - Anuria [Not Recovered/Not Resolved]
  - Oedema [Not Recovered/Not Resolved]

NARRATIVE: CASE EVENT DATE: 20251001
